FAERS Safety Report 9706196 (Version 4)
Quarter: 2014Q2

REPORT INFORMATION
  Report Type: Report from Study
  Country: IT (occurrence: IT)
  Receive Date: 20131124
  Receipt Date: 20140623
  Transmission Date: 20141212
  Serious: No
  Sender: FDA-Public Use
  Company Number: IT-ROCHE-1201882

PATIENT
  Age: 62 Year
  Sex: Male

DRUGS (4)
  1. VEMURAFENIB [Suspect]
     Indication: METASTATIC MALIGNANT MELANOMA
     Route: 048
     Dates: start: 20130222
  2. ANTRA [Concomitant]
     Indication: PROPHYLAXIS
     Route: 048
  3. NORVASC [Concomitant]
     Indication: HYPERTENSION
     Route: 048
  4. TRIATEC (ITALY) [Concomitant]
     Indication: HYPERTENSION
     Route: 048

REACTIONS (6)
  - Disease progression [Recovered/Resolved]
  - Rash [Recovered/Resolved]
  - Oedema peripheral [Recovered/Resolved]
  - Ocular hyperaemia [Not Recovered/Not Resolved]
  - Arthralgia [Recovered/Resolved]
  - Palmoplantar keratoderma [Recovered/Resolved]
